FAERS Safety Report 24543305 (Version 1)
Quarter: 2024Q4

REPORT INFORMATION
  Report Type: Spontaneous
  Country: CN (occurrence: CN)
  Receive Date: 20241024
  Receipt Date: 20241024
  Transmission Date: 20250114
  Serious: Yes (Hospitalization)
  Sender: BEIGENE
  Company Number: CN-BEIGENE-BGN-2024-016585

PATIENT

DRUGS (3)
  1. TISLELIZUMAB [Suspect]
     Active Substance: TISLELIZUMAB
     Indication: Squamous cell carcinoma of lung
     Dosage: 200 MILLIGRAM
     Route: 041
     Dates: start: 20240830
  2. TISLELIZUMAB [Suspect]
     Active Substance: TISLELIZUMAB
     Dosage: 200 MILLIGRAM
     Route: 041
     Dates: start: 20240921
  3. EBASTINE [Concomitant]
     Active Substance: EBASTINE
     Indication: Antiallergic therapy
     Dosage: 10 MILLIGRAM
     Route: 048
     Dates: start: 20240905, end: 20240923

REACTIONS (9)
  - Erythema multiforme [Unknown]
  - Lung abscess [Recovering/Resolving]
  - Decreased appetite [Unknown]
  - Constipation [Unknown]
  - Swelling face [Unknown]
  - Oedema peripheral [Unknown]
  - Breath sounds abnormal [Unknown]
  - Rales [Unknown]
  - Wheezing [Unknown]

NARRATIVE: CASE EVENT DATE: 20240905
